FAERS Safety Report 14223236 (Version 5)
Quarter: 2018Q2

REPORT INFORMATION
  Report Type: Report from Study
  Country: CA (occurrence: CA)
  Receive Date: 20171125
  Receipt Date: 20180428
  Transmission Date: 20180711
  Serious: Yes (Hospitalization, Disabling, Other)
  Sender: FDA-Public Use
  Company Number: CA-AMGEN-CANSL2017132248

PATIENT
  Age: 65 Year
  Sex: Male
  Weight: 75 kg

DRUGS (6)
  1. KYPROLIS [Suspect]
     Active Substance: CARFILZOMIB
     Indication: PLASMA CELL MYELOMA
     Dosage: 52 MG, DAY 1,2,8,9,15,16
     Route: 042
     Dates: start: 20170822, end: 201709
  2. DEXAMETHASONE. [Concomitant]
     Active Substance: DEXAMETHASONE
     Indication: PLASMA CELL MYELOMA
     Dosage: 20 MG, UNK
     Route: 048
  3. KYPROLIS [Suspect]
     Active Substance: CARFILZOMIB
     Dosage: 52 MG,  DAY 1,2,8,9,15,16, ODX2X3 WEEKS
     Route: 042
     Dates: start: 20170905, end: 2017
  4. KYPROLIS [Suspect]
     Active Substance: CARFILZOMIB
     Dosage: 28 MG, DAY 1, 2, 8, 9, 15, 16, CYCLE 3/(ODX2X3 WEEKS)
     Route: 042
  5. KYPROLIS [Suspect]
     Active Substance: CARFILZOMIB
     Dosage: 28 MG, DAY 1, 2, 8, 9, 15, 16, CYCLE 3/(ODX2X3 WEEKS)
     Route: 042
     Dates: start: 20171103
  6. KYPROLIS [Suspect]
     Active Substance: CARFILZOMIB
     Dosage: UNK (2 DAYS A WEEK FOR 3 WEEKS WITH ONE WEEK OFF)
     Route: 042

REACTIONS (23)
  - Rib fracture [Unknown]
  - Hypotension [Not Recovered/Not Resolved]
  - Mucosal inflammation [Unknown]
  - Pain [Unknown]
  - Anaemia [Not Recovered/Not Resolved]
  - Dyspnoea exertional [Recovering/Resolving]
  - Fatigue [Unknown]
  - Increased appetite [Not Recovered/Not Resolved]
  - Nausea [Recovering/Resolving]
  - Weight decreased [Not Recovered/Not Resolved]
  - Anxiety [Unknown]
  - Fall [Recovered/Resolved]
  - Contusion [Unknown]
  - Complication associated with device [Unknown]
  - Pyrexia [Not Recovered/Not Resolved]
  - Depression [Recovering/Resolving]
  - Malaise [Unknown]
  - Somnolence [Unknown]
  - Pneumonia [Recovered/Resolved]
  - Thrombocytopenia [Not Recovered/Not Resolved]
  - Neutropenia [Not Recovered/Not Resolved]
  - Central venous catheterisation [Recovered/Resolved]
  - Chest pain [Recovered/Resolved]

NARRATIVE: CASE EVENT DATE: 2017
